FAERS Safety Report 4932786-1 (Version None)
Quarter: 2006Q1

REPORT INFORMATION
  Report Type: 
  Country: None (occurrence: None)
  Receive Date: 20060301
  Receipt Date: 20060301
  Transmission Date: 20060701
  Serious: Yes (Death)
  Sender: FDA-Public Use
  Company Number: None

PATIENT
  Age: 58 Year
  Sex: Male
  Weight: 67.3592 kg

DRUGS (10)
  1. TAXOTERE [Suspect]
     Indication: NON-SMALL CELL LUNG CANCER
     Dosage: 20MG/M2   QWEEK  IV
     Route: 042
     Dates: start: 20060117, end: 20060215
  2. CARBOPLATIN [Suspect]
     Indication: NON-SMALL CELL LUNG CANCER
     Dosage: AUC 6   QWEEK  IV
     Route: 042
     Dates: start: 20060117, end: 20060215
  3. DECADRON SRC [Concomitant]
  4. PEPCID [Concomitant]
  5. ROXICODONE LIQUID [Concomitant]
  6. ATIVAN [Concomitant]
  7. ELAVIL [Concomitant]
  8. ATENOLOL [Concomitant]
  9. ADVAIR DISKUS 100/50 [Concomitant]
  10. NIFEDIAC [Concomitant]

REACTIONS (4)
  - ANGIOPATHY [None]
  - DISEASE PROGRESSION [None]
  - HAEMATEMESIS [None]
  - UPPER GASTROINTESTINAL HAEMORRHAGE [None]
